FAERS Safety Report 4772235-X (Version None)
Quarter: 2005Q3

REPORT INFORMATION
  Report Type: 
  Country: None (occurrence: None)
  Receive Date: 20050919
  Receipt Date: 20050307
  Transmission Date: 20060218
  Serious: No
  Sender: FDA-Public Use
  Company Number: US-BRISTOL-MYERS SQUIBB COMPANY-12889317

PATIENT
  Age: 61 Year
  Sex: Female
  Weight: 70 kg

DRUGS (1)
  1. DEFINITY [Suspect]
     Indication: STRESS ECHOCARDIOGRAM
     Dosage: MECHANICAL INDEX SETTING 0.5
     Route: 042
     Dates: start: 20050225

REACTIONS (3)
  - BACK PAIN [None]
  - FLUSHING [None]
  - PAIN IN EXTREMITY [None]
